FAERS Safety Report 9549020 (Version 5)
Quarter: 2014Q1

REPORT INFORMATION
  Report Type: Spontaneous
  Country: JP (occurrence: JP)
  Receive Date: 20130924
  Receipt Date: 20140311
  Transmission Date: 20141002
  Serious: Yes (Life-Threatening, Hospitalization)
  Sender: FDA-Public Use
  Company Number: JP-PFIZER INC-2013251426

PATIENT
  Age: 82 Year
  Sex: Male
  Weight: 51 kg

DRUGS (1)
  1. INLYTA [Suspect]
     Indication: RENAL CANCER
     Dosage: 5 MG, 1X/DAY
     Route: 048
     Dates: start: 20130710

REACTIONS (2)
  - Pneumatosis intestinalis [Recovering/Resolving]
  - Pyrexia [Recovered/Resolved]
